FAERS Safety Report 20421034 (Version 1)
Quarter: 2022Q1

REPORT INFORMATION
  Report Type: Spontaneous
  Country: US (occurrence: US)
  Receive Date: 20220203
  Receipt Date: 20220203
  Transmission Date: 20220423
  Serious: No
  Sender: FDA-Public Use
  Company Number: US-PFIZER INC-2019372550

PATIENT
  Age: 67 Year
  Sex: Female

DRUGS (2)
  1. CHANTIX [Suspect]
     Active Substance: VARENICLINE TARTRATE
     Indication: Tobacco user
     Dosage: TAKE 1 TABLET BY ORAL ROUTE 2 TIMES EVERYDAY WITH GLASS OF WATER AFTER MEALS (STRENGTH: 1 MG)
     Route: 048
  2. CHANTIX [Suspect]
     Active Substance: VARENICLINE TARTRATE
     Indication: Smoking cessation therapy
     Dosage: TAKE 1 TABLET BY ORAL ROUTE AS DIRECTED (STRENGTH: 5 MG)
     Route: 048

REACTIONS (3)
  - Chronic obstructive pulmonary disease [Unknown]
  - Cardiac disorder [Unknown]
  - Memory impairment [Unknown]
